FAERS Safety Report 21298963 (Version 1)
Quarter: 2022Q3

REPORT INFORMATION
  Report Type: Spontaneous
  Country: CN (occurrence: CN)
  Receive Date: 20220906
  Receipt Date: 20220906
  Transmission Date: 20221026
  Serious: Yes (Other)
  Sender: FDA-Public Use
  Company Number: CN-CMP PHARMA-2022CMP00022

PATIENT
  Age: 87 Year
  Sex: Female

DRUGS (5)
  1. ISONIAZID [Suspect]
     Active Substance: ISONIAZID
     Indication: Tuberculous pleurisy
     Dosage: 0.3 G, 1X/DAY
     Route: 065
  2. RIFAPENTINE [Concomitant]
     Active Substance: RIFAPENTINE
     Indication: Tuberculous pleurisy
     Dosage: 0.9 G, 1X/WEEK
     Route: 065
  3. PYRAZINAMIDE [Concomitant]
     Active Substance: PYRAZINAMIDE
     Indication: Tuberculous pleurisy
     Dosage: 0.25 G PER 8 H
     Route: 065
  4. LEVOFLOXACIN [Concomitant]
     Active Substance: LEVOFLOXACIN
     Indication: Tuberculous pleurisy
     Dosage: 0.5 G, 1X/DAY
     Route: 065
  5. METHYLPREDNISOLONE [Concomitant]
     Active Substance: METHYLPREDNISOLONE
     Indication: Tuberculous pleurisy
     Dosage: 40 MG, 1X/DAY
     Route: 065

REACTIONS (2)
  - Gastrointestinal haemorrhage [Unknown]
  - Thrombocytopenia [Recovered/Resolved]
